FAERS Safety Report 6578089-3 (Version None)
Quarter: 2010Q1

REPORT INFORMATION
  Report Type: 
  Country: None (occurrence: None)
  Receive Date: 20100211
  Receipt Date: 20100128
  Transmission Date: 20100710
  Serious: Yes (Other)
  Sender: FDA-Public Use
  Company Number: CZ-GENENTECH-297610

PATIENT

DRUGS (3)
  1. RITUXIMAB [Suspect]
     Indication: RENAL DISORDER
     Dosage: UNK
     Route: 065
  2. CORTICOSTEROIDS [Concomitant]
     Indication: DRUG USE FOR UNKNOWN INDICATION
     Dosage: UNK
     Route: 042
  3. PARALEN [Concomitant]
     Indication: DRUG USE FOR UNKNOWN INDICATION
     Dosage: UNK

REACTIONS (4)
  - CHILLS [None]
  - HYPERSENSITIVITY [None]
  - INFECTION [None]
  - PYREXIA [None]
